FAERS Safety Report 6460870-2 (Version None)
Quarter: 2009Q4

REPORT INFORMATION
  Report Type: 
  Country: None (occurrence: None)
  Receive Date: 20091125
  Receipt Date: 20091125
  Transmission Date: 20100525
  Serious: No
  Sender: FDA-Public Use
  Company Number: None

PATIENT
  Age: 18 Year
  Sex: Female
  Weight: 52.1637 kg

DRUGS (2)
  1. YAZ [Suspect]
     Indication: ACNE
     Dosage: 1 PACK OF BIRTH CONTROL ONCE A DAY PO
     Route: 048
     Dates: start: 20080720, end: 20080727
  2. YAZ [Suspect]
     Indication: PREMENSTRUAL SYNDROME
     Dosage: 1 PACK OF BIRTH CONTROL ONCE A DAY PO
     Route: 048
     Dates: start: 20080720, end: 20080727

REACTIONS (4)
  - CARDIAC DISORDER [None]
  - CHEST PAIN [None]
  - PALPITATIONS [None]
  - SLEEP DISORDER [None]
